FAERS Safety Report 13608060 (Version 1)
Quarter: 2017Q2

REPORT INFORMATION
  Report Type: Spontaneous
  Country: GB (occurrence: GB)
  Receive Date: 20170602
  Receipt Date: 20170602
  Transmission Date: 20170830
  Serious: Yes (Hospitalization)
  Sender: FDA-Public Use
  Company Number: GB-CANTON LABORATORIES, LLC-2021486

PATIENT
  Age: 64 Year
  Sex: Male

DRUGS (2)
  1. PARACETAMOL [Suspect]
     Active Substance: ACETAMINOPHEN
     Route: 065
  2. NAPROSYN [Suspect]
     Active Substance: NAPROXEN
     Indication: OSTEOARTHRITIS
     Route: 048
     Dates: start: 2015, end: 20170509

REACTIONS (10)
  - Balance disorder [Unknown]
  - Hypotension [Unknown]
  - Abdominal pain [Unknown]
  - Duodenal ulcer [Recovering/Resolving]
  - Dyspnoea exertional [Unknown]
  - Upper gastrointestinal haemorrhage [Recovering/Resolving]
  - Decreased appetite [Unknown]
  - Dyspepsia [Unknown]
  - Melaena [Unknown]
  - Gastrooesophageal reflux disease [Unknown]

NARRATIVE: CASE EVENT DATE: 201705
